FAERS Safety Report 5398827-5 (Version None)
Quarter: 2007Q3

REPORT INFORMATION
  Report Type: 
  Country: None (occurrence: None)
  Receive Date: 20070725
  Receipt Date: 20070725
  Transmission Date: 20080115
  Serious: Yes (Other)
  Sender: FDA-Public Use
  Company Number: None

PATIENT
  Sex: Female
  Weight: 83.9154 kg

DRUGS (1)
  1. ZOMETA [Suspect]
     Dosage: ZOMETA  IV
     Route: 042

REACTIONS (1)
  - BONE DISORDER [None]
